FAERS Safety Report 24074977 (Version 1)
Quarter: 2024Q3

REPORT INFORMATION
  Report Type: Spontaneous
  Country: US (occurrence: US)
  Receive Date: 20240710
  Receipt Date: 20240710
  Transmission Date: 20241017
  Serious: No
  Sender: TEVA
  Company Number: US-TEVA-VS-3213895

PATIENT

DRUGS (1)
  1. COPAXONE [Suspect]
     Active Substance: GLATIRAMER ACETATE
     Dosage: COPAXONE PFS 40MG/ML.
     Route: 065

REACTIONS (3)
  - Injection site injury [Unknown]
  - Incorrect dose administered [Unknown]
  - Device issue [Unknown]
